FAERS Safety Report 5379586-9 (Version None)
Quarter: 2007Q3

REPORT INFORMATION
  Report Type: 
  Country: None (occurrence: None)
  Receive Date: 20070706
  Receipt Date: 20070627
  Transmission Date: 20080115
  Serious: Yes (Other)
  Sender: FDA-Public Use
  Company Number: JP-ABBOTT-07P-087-0373082-00

PATIENT
  Sex: Male

DRUGS (15)
  1. NORVIR [Suspect]
     Indication: HIV INFECTION
     Route: 048
     Dates: start: 20060905
  2. CLARITHROMYCIN [Suspect]
     Indication: MYCOBACTERIA TEST
     Route: 048
     Dates: start: 20060925, end: 20061002
  3. CLARITHROMYCIN [Suspect]
     Route: 048
     Dates: start: 20061010, end: 20061211
  4. ATAZANAVIR SULFATE [Suspect]
     Indication: HIV INFECTION
     Route: 048
     Dates: start: 20060905
  5. AZITHROMYCIN HYDRATE [Suspect]
     Indication: MYCOBACTERIA TEST
     Route: 048
     Dates: start: 20061003, end: 20061009
  6. AZITHROMYCIN HYDRATE [Suspect]
     Route: 048
     Dates: start: 20061212, end: 20070122
  7. ETHAMBUTOL HYDROCHLORIDE [Suspect]
     Indication: MYCOBACTERIA TEST
     Route: 048
     Dates: start: 20060925
  8. RIFABUTIN [Suspect]
     Indication: MYCOBACTERIA TEST
     Route: 048
     Dates: start: 20061010
  9. ABACAVIR W/LAMIVUDINE [Concomitant]
     Indication: HIV INFECTION
     Route: 048
     Dates: start: 20060905
  10. VALGANCICLOVIR HCL [Concomitant]
     Indication: CYTOMEGALOVIRUS OESOPHAGITIS
     Route: 048
     Dates: start: 20060707, end: 20060713
  11. FLUCONAZOLE [Concomitant]
     Indication: OESOPHAGEAL CANDIDIASIS
     Route: 048
     Dates: start: 20060630, end: 20060713
  12. BACTRIM [Concomitant]
     Indication: PNEUMOCYSTIS JIROVECI PNEUMONIA
     Route: 048
     Dates: start: 20060625, end: 20060724
  13. BACTRIM [Concomitant]
     Indication: ANTIFUNGAL PROPHYLAXIS
     Route: 048
     Dates: start: 20060725
  14. AMPHOTERICIN B [Concomitant]
     Indication: ANTIFUNGAL PROPHYLAXIS
     Route: 048
     Dates: start: 20060714, end: 20060801
  15. AMPHOTERICIN B [Concomitant]
     Indication: OESOPHAGEAL CANDIDIASIS
     Route: 048
     Dates: start: 20060905, end: 20060925

REACTIONS (8)
  - ATYPICAL MYCOBACTERIAL INFECTION [None]
  - ATYPICAL MYCOBACTERIAL LYMPHADENITIS [None]
  - HEPATIC FUNCTION ABNORMAL [None]
  - IMMUNE RECONSTITUTION SYNDROME [None]
  - KAPOSI'S SARCOMA [None]
  - LYMPHADENOPATHY [None]
  - PROGRESSIVE MULTIFOCAL LEUKOENCEPHALOPATHY [None]
  - VISUAL FIELD DEFECT [None]
